FAERS Safety Report 5706512-2 (Version None)
Quarter: 2008Q2

REPORT INFORMATION
  Report Type: 
  Country: None (occurrence: None)
  Receive Date: 20080414
  Receipt Date: 20080331
  Transmission Date: 20081010
  Serious: Yes (Disabling)
  Sender: FDA-Public Use
  Company Number: SPV1-2008-00735

PATIENT
  Age: 25 Year
  Sex: Male
  Weight: 72.6 kg

DRUGS (2)
  1. VYVANSE [Suspect]
     Indication: ATTENTION DEFICIT/HYPERACTIVITY DISORDER
     Dosage: 50 MG, 1X/DAY;QD;ORAL; 70 MG, 1X/DAY:QD, ORAL
     Route: 048
     Dates: start: 20080101, end: 20080314
  2. VYVANSE [Suspect]
     Indication: ATTENTION DEFICIT/HYPERACTIVITY DISORDER
     Dosage: 50 MG, 1X/DAY;QD;ORAL; 70 MG, 1X/DAY:QD, ORAL
     Route: 048
     Dates: start: 20080314, end: 20080329

REACTIONS (5)
  - DIPLOPIA [None]
  - HYPOAESTHESIA [None]
  - NYSTAGMUS [None]
  - OFF LABEL USE [None]
  - VISION BLURRED [None]
